FAERS Safety Report 10373370 (Version 1)
Quarter: 2014Q3

REPORT INFORMATION
  Report Type: Spontaneous
  Country: US (occurrence: US)
  Receive Date: 20140808
  Receipt Date: 20140808
  Transmission Date: 20150326
  Serious: No
  Sender: FDA-Public Use
  Company Number: US-BRISTOL-MYERS SQUIBB COMPANY-20549853

PATIENT
  Age: 56 Year
  Sex: Female
  Weight: 103.85 kg

DRUGS (2)
  1. SPRYCEL [Suspect]
     Active Substance: DASATINIB
     Indication: CHRONIC MYELOID LEUKAEMIA
  2. PROVIGIL [Concomitant]
     Active Substance: MODAFINIL

REACTIONS (2)
  - Rash generalised [Recovered/Resolved]
  - Nausea [Recovered/Resolved]
